FAERS Safety Report 9696947 (Version 2)
Quarter: 2013Q4

REPORT INFORMATION
  Report Type: Spontaneous
  Country: US (occurrence: US)
  Receive Date: 20131119
  Receipt Date: 20131119
  Transmission Date: 20140711
  Serious: Yes (Hospitalization)
  Sender: FDA-Public Use
  Company Number: US-B.I. PHARMACEUTICALS,INC./RIDGEFIELD-2013-BI-15450BP

PATIENT
  Sex: Male
  Weight: 96.16 kg

DRUGS (9)
  1. PRADAXA [Suspect]
     Indication: ANTICOAGULANT THERAPY
     Dates: start: 20110907, end: 20110923
  2. PRADAXA [Suspect]
     Indication: ATRIAL FIBRILLATION
  3. VICODIN [Concomitant]
     Route: 048
  4. METFORMIN [Concomitant]
     Indication: TYPE 2 DIABETES MELLITUS
     Dosage: 2000 MG
     Route: 048
  5. VICTOZA [Concomitant]
     Indication: TYPE 2 DIABETES MELLITUS
     Dosage: 1.2 MG
     Route: 058
  6. CYMBALTA [Concomitant]
     Dosage: 60 MG
     Route: 048
  7. BUPROPION XL [Concomitant]
     Dosage: 60 MG
     Route: 048
  8. METOPROLOL [Concomitant]
     Dosage: 120 MG
     Route: 048
  9. ORACEA [Concomitant]
     Route: 048

REACTIONS (2)
  - Upper gastrointestinal haemorrhage [Unknown]
  - Anaemia [Unknown]
